FAERS Safety Report 9957782 (Version 2)
Quarter: 2014Q1

REPORT INFORMATION
  Report Type: Report from Study
  Country: US (occurrence: US)
  Receive Date: 20140304
  Receipt Date: 20140304
  Transmission Date: 20141002
  Serious: Yes (Other)
  Sender: FDA-Public Use
  Company Number: US-ABBVIE-13P-163-1052523-00

PATIENT
  Age: 64 Year
  Sex: Female

DRUGS (11)
  1. HUMIRA [Suspect]
     Indication: RHEUMATOID ARTHRITIS
     Dates: start: 201301, end: 20130213
  2. HUMIRA [Suspect]
     Dates: start: 20130322, end: 20130406
  3. METHOTREXATE [Concomitant]
     Indication: RHEUMATOID ARTHRITIS
  4. PRILOSEC [Concomitant]
     Indication: GASTROOESOPHAGEAL REFLUX DISEASE
     Dosage: DAILY
  5. ULTRAM [Concomitant]
     Indication: RHEUMATOID ARTHRITIS
     Dosage: EXTENDED RELEASE
  6. PLAQUENIL [Concomitant]
     Indication: RHEUMATOID ARTHRITIS
  7. FOLIC ACID [Concomitant]
     Indication: VITAMIN SUPPLEMENTATION
  8. VITAMIN B [Concomitant]
     Indication: VITAMIN SUPPLEMENTATION
  9. CALCIUM [Concomitant]
     Indication: MINERAL SUPPLEMENTATION
  10. 8 HISTO AMIN [Concomitant]
     Indication: IRRITABLE BOWEL SYNDROME
  11. MOBIC [Concomitant]
     Indication: RHEUMATOID ARTHRITIS

REACTIONS (8)
  - Lupus-like syndrome [Not Recovered/Not Resolved]
  - Epistaxis [Recovered/Resolved]
  - Back pain [Recovered/Resolved]
  - Abdominal pain lower [Recovered/Resolved]
  - Injection site erythema [Recovered/Resolved]
  - Urticaria [Unknown]
  - Lip swelling [Unknown]
  - Rash erythematous [Unknown]
